FAERS Safety Report 4523947-4 (Version None)
Quarter: 2004Q4

REPORT INFORMATION
  Report Type: 
  Country: None (occurrence: None)
  Receive Date: 20041209
  Receipt Date: 20041203
  Transmission Date: 20050328
  Serious: Yes (Hospitalization, Disabling)
  Sender: FDA-Public Use
  Company Number: TPA2004A01510

PATIENT
  Age: 38 Year
  Sex: Male
  Weight: 124.7392 kg

DRUGS (5)
  1. ACTOS [Suspect]
     Indication: DIABETES MELLITUS NON-INSULIN-DEPENDENT
     Dosage: 45 MG, 1 IN 1 D, PER ORAL
     Route: 048
     Dates: start: 20000101
  2. BACLOFEN [Concomitant]
  3. KLONOPIN [Concomitant]
  4. GLIPIZIDE [Concomitant]
  5. ZANAFLEX [Concomitant]

REACTIONS (3)
  - CYSTITIS [None]
  - PNEUMONIA [None]
  - RASH ERYTHEMATOUS [None]
